FAERS Safety Report 5837603-3 (Version None)
Quarter: 2008Q3

REPORT INFORMATION
  Report Type: 
  Country: None (occurrence: None)
  Receive Date: 20080807
  Receipt Date: 20080729
  Transmission Date: 20090109
  Serious: Yes (Other)
  Sender: FDA-Public Use
  Company Number: PHHY2008FR17106

PATIENT
  Sex: Male

DRUGS (4)
  1. EXFORGE [Suspect]
     Indication: HYPERTENSION
     Dosage: 10/160 MG
     Dates: start: 20080707
  2. HEMIGOXINE [Concomitant]
  3. CORDARONE [Concomitant]
  4. PREVISCAN [Concomitant]

REACTIONS (3)
  - OEDEMA PERIPHERAL [None]
  - PAIN [None]
  - WEIGHT INCREASED [None]
